FAERS Safety Report 9387207 (Version 1)
Quarter: 2013Q3

REPORT INFORMATION
  Report Type: Spontaneous
  Country: US (occurrence: None)
  Receive Date: 20130703
  Receipt Date: 20130703
  Transmission Date: 20140515
  Serious: No
  Sender: FDA-Public Use
  Company Number: None

PATIENT
  Age: 23 Year
  Sex: Female
  Weight: 62.14 kg

DRUGS (1)
  1. AMPHETAMINE ASPARTATE AND AMPHETAMINE SULFATE AND DEXTROAMPHETAMINE SACCHARATE AND DEXTROAMPHETAMINE [Suspect]
     Indication: ATTENTION DEFICIT/HYPERACTIVITY DISORDER
     Dates: start: 201303

REACTIONS (3)
  - Headache [None]
  - Product substitution issue [None]
  - Therapeutic response unexpected with drug substitution [None]
